FAERS Safety Report 7318604-5 (Version None)
Quarter: 2011Q1

REPORT INFORMATION
  Report Type: 
  Country: None (occurrence: None)
  Receive Date: 20110223
  Receipt Date: 20110223
  Transmission Date: 20110831
  Serious: No
  Sender: FDA-Public Use
  Company Number: None

PATIENT
  Age: 46 Year
  Sex: Female
  Weight: 54.8852 kg

DRUGS (1)
  1. BOTOX COSMETIC DON'T HAVE ALLERGAN [Suspect]
     Indication: SKIN COSMETIC PROCEDURE
     Dosage: 25CC 1 CUTANEOUS
     Route: 003
     Dates: start: 20100504, end: 20100504

REACTIONS (16)
  - THROAT IRRITATION [None]
  - INFLAMMATION [None]
  - DYSPHAGIA [None]
  - DRY MOUTH [None]
  - POLLAKIURIA [None]
  - HYPERTENSION [None]
  - DRY EYE [None]
  - LETHARGY [None]
  - ANXIETY [None]
  - MALAISE [None]
  - TREATMENT NONCOMPLIANCE [None]
  - MENOPAUSE [None]
  - THIRST [None]
  - POLYDIPSIA [None]
  - HYPOHIDROSIS [None]
  - INSOMNIA [None]
